FAERS Safety Report 13333242 (Version 2)
Quarter: 2018Q2

REPORT INFORMATION
  Report Type: Spontaneous
  Country: US (occurrence: US)
  Receive Date: 20170313
  Receipt Date: 20180418
  Transmission Date: 20180711
  Serious: No
  Sender: FDA-Public Use
  Company Number: US-TEVA-742456USA

PATIENT
  Age: 69 Year
  Sex: Female

DRUGS (24)
  1. GABAPENTIN. [Concomitant]
     Active Substance: GABAPENTIN
  2. LASIX [Concomitant]
     Active Substance: FUROSEMIDE
  3. ASPIRIN. [Concomitant]
     Active Substance: ASPIRIN
  4. SPIRONOLACTONE. [Concomitant]
     Active Substance: SPIRONOLACTONE
  5. VITAMIN B12 [Concomitant]
     Active Substance: CYANOCOBALAMIN
  6. CITRACAL [Concomitant]
     Active Substance: CALCIUM CITRATE
  7. ZYFLO [Concomitant]
     Active Substance: ZILEUTON
  8. MONTELUKAST [Concomitant]
     Active Substance: MONTELUKAST SODIUM
  9. ALIGN [Concomitant]
     Active Substance: BIFIDOBACTERIUM LONGUM SUBSP. INFANTIS
  10. FLOVENT HFA [Concomitant]
     Active Substance: FLUTICASONE PROPIONATE
     Dosage: AEROSOL
  11. CINQAIR [Concomitant]
     Active Substance: RESLIZUMAB
  12. COPAXONE [Suspect]
     Active Substance: GLATIRAMER ACETATE
     Indication: MULTIPLE SCLEROSIS
     Dosage: PFS
     Route: 058
     Dates: start: 20150903
  13. VYTORIN [Concomitant]
     Active Substance: EZETIMIBE\SIMVASTATIN
     Dosage: 10-20 MG
  14. CINNAMON. [Concomitant]
     Active Substance: CINNAMON
  15. FLOVENT DISK [Concomitant]
     Dosage: AEROSOL
  16. SYNTHROID [Concomitant]
     Active Substance: LEVOTHYROXINE SODIUM
  17. ZILEUTON ER [Concomitant]
     Active Substance: ZILEUTON
  18. PERFOROMIST [Concomitant]
     Active Substance: FORMOTEROL FUMARATE DIHYDRATE
     Dosage: NEBULIZER
  19. LIDOCAINE W/PRILOCAINE [Concomitant]
     Active Substance: LIDOCAINE\PRILOCAINE
     Dosage: 2.6-2.5%
  20. VITAMIN D3 [Concomitant]
     Active Substance: CHOLECALCIFEROL
     Dosage: 1000 UNITS
  21. EZETIM/SIMVA [Concomitant]
     Dosage: 10-20 MG
  22. FUROSEMIDE. [Concomitant]
     Active Substance: FUROSEMIDE
  23. FLUTICASONE. [Concomitant]
     Active Substance: FLUTICASONE
     Dosage: SPRAY
  24. VANIQA [Concomitant]
     Active Substance: EFLORNITHINE HYDROCHLORIDE

REACTIONS (4)
  - Injection site erythema [Unknown]
  - Peripheral swelling [Not Recovered/Not Resolved]
  - Incorrect route of drug administration [Unknown]
  - Contusion [Not Recovered/Not Resolved]

NARRATIVE: CASE EVENT DATE: 201702
